FAERS Safety Report 10736927 (Version 1)
Quarter: 2015Q1

REPORT INFORMATION
  Report Type: Report from Study
  Country: US (occurrence: US)
  Receive Date: 20150126
  Receipt Date: 20150126
  Transmission Date: 20150721
  Serious: Yes (Hospitalization)
  Sender: FDA-Public Use
  Company Number: US-ACTELION-A-US2015-111224

PATIENT
  Age: 68 Year
  Sex: Male

DRUGS (3)
  1. TARGRETIN [Concomitant]
     Active Substance: BEXAROTENE
     Dosage: 75 MG, UNK
  2. MECHLORETHAMINE [Suspect]
     Active Substance: MECHLORETHAMINE
     Indication: MYCOSIS FUNGOIDES
     Dosage: 0.016 %, QD
     Route: 061
     Dates: start: 20141216
  3. FISH OIL [Concomitant]
     Active Substance: FISH OIL
     Dosage: 360-1200 MG, UNK

REACTIONS (3)
  - Nephrolithiasis [Recovered/Resolved]
  - Renal stone removal [Recovered/Resolved]
  - Kidney infection [Recovered/Resolved]
